FAERS Safety Report 15806194 (Version 5)
Quarter: 2022Q1

REPORT INFORMATION
  Report Type: Spontaneous
  Country: US (occurrence: US)
  Receive Date: 20190110
  Receipt Date: 20220328
  Transmission Date: 20220424
  Serious: No
  Sender: FDA-Public Use
  Company Number: US-PFIZER INC-2019010463

PATIENT
  Age: 35 Year
  Sex: Female

DRUGS (3)
  1. SOMAVERT [Suspect]
     Active Substance: PEGVISOMANT
     Indication: Acromegaly
     Dosage: 20 MG, DAILY
     Route: 058
     Dates: start: 201709
  2. SOMAVERT [Suspect]
     Active Substance: PEGVISOMANT
     Indication: Gigantism
     Dosage: 20 MG, ALTERNATE DAY/EVERY OTHER DAY
     Route: 058
     Dates: start: 20181217
  3. SOMAVERT [Suspect]
     Active Substance: PEGVISOMANT
     Dosage: 10 MG, 2X/WEEK

REACTIONS (8)
  - Off label use [Unknown]
  - Injection site bruising [Unknown]
  - Headache [Recovering/Resolving]
  - Alopecia [Unknown]
  - Progesterone abnormal [Unknown]
  - Amenorrhoea [Unknown]
  - Disease recurrence [Unknown]
  - Exposure during pregnancy [Unknown]

NARRATIVE: CASE EVENT DATE: 20181201
